FAERS Safety Report 9910212 (Version 4)
Quarter: 2014Q2

REPORT INFORMATION
  Report Type: Spontaneous
  Country: US (occurrence: US)
  Receive Date: 20140219
  Receipt Date: 20140401
  Transmission Date: 20141212
  Serious: No
  Sender: FDA-Public Use
  Company Number: US-B.I. PHARMACEUTICALS,INC./RIDGEFIELD-2014-BI-06406BP

PATIENT
  Age: 78 Year
  Sex: Male

DRUGS (7)
  1. SPIRIVA [Suspect]
     Indication: CHRONIC OBSTRUCTIVE PULMONARY DISEASE
     Dosage: 18 MCG
     Route: 055
  2. FLOMAX [Concomitant]
     Indication: PROSTATOMEGALY
     Route: 065
  3. UNSPECIFIED ANTIHYPERTENSIVE [Concomitant]
     Indication: ESSENTIAL HYPERTENSION
     Route: 065
  4. PRAVASTATIN [Concomitant]
     Indication: HYPERCHOLESTEROLAEMIA
     Route: 065
  5. HCTZ [Concomitant]
     Route: 065
  6. VERAPMIL [Concomitant]
     Route: 065
  7. BABY ASPIRIN [Concomitant]
     Route: 065

REACTIONS (11)
  - Dyspnoea [Not Recovered/Not Resolved]
  - Muscle spasms [Not Recovered/Not Resolved]
  - Nerve compression [Unknown]
  - Dyspnoea [Not Recovered/Not Resolved]
  - Hearing impaired [Not Recovered/Not Resolved]
  - Pain [Unknown]
  - Irritability [Unknown]
  - Memory impairment [Unknown]
  - Inflammation [Unknown]
  - Product quality issue [Not Recovered/Not Resolved]
  - Product quality issue [Not Recovered/Not Resolved]
